FAERS Safety Report 9369365 (Version 1)
Quarter: 2013Q2

REPORT INFORMATION
  Report Type: Spontaneous
  Country: US (occurrence: US)
  Receive Date: 20130626
  Receipt Date: 20130626
  Transmission Date: 20140414
  Serious: No
  Sender: FDA-Public Use
  Company Number: US-BAYER-2013-074945

PATIENT
  Sex: 0

DRUGS (1)
  1. AVELOX [Suspect]
     Indication: PAROTID GLAND INFLAMMATION
     Dosage: 400 MG, DAILY
     Route: 048

REACTIONS (1)
  - Off label use [None]
